FAERS Safety Report 17070728 (Version 3)
Quarter: 2020Q1

REPORT INFORMATION
  Report Type: Spontaneous
  Country: TR (occurrence: TR)
  Receive Date: 20191125
  Receipt Date: 20200106
  Transmission Date: 20200409
  Serious: Yes (Other)
  Sender: FDA-Public Use
  Company Number: TR-AMERICAN REGENT INC-2019002593

PATIENT
  Sex: Female

DRUGS (3)
  1. AVIL                               /00085102/ [Concomitant]
     Active Substance: PHENIRAMINE MALEATE
     Indication: PRODUCT USED FOR UNKNOWN INDICATION
     Dosage: UNK
     Route: 065
  2. FERINJECT [Suspect]
     Active Substance: FERRIC CARBOXYMALTOSE
     Indication: PRODUCT USED FOR UNKNOWN INDICATION
     Dosage: 2 FLAKON WITH 250 ML NORMAL SALINE WERE GIVEN
     Route: 042
     Dates: start: 20191107, end: 20191107
  3. DEKORT                             /00016001/ [Concomitant]
     Indication: PRODUCT USED FOR UNKNOWN INDICATION
     Dosage: UNK
     Route: 065

REACTIONS (4)
  - Maternal exposure during pregnancy [Recovered/Resolved]
  - Dyspnoea [Recovered/Resolved]
  - Muscle spasms [Recovered/Resolved]
  - Hypoaesthesia [Recovered/Resolved]

NARRATIVE: CASE EVENT DATE: 201911
